FAERS Safety Report 8257863-1 (Version None)
Quarter: 2012Q1

REPORT INFORMATION
  Report Type: 
  Country: None (occurrence: None)
  Receive Date: 20111211
  Receipt Date: 20110913
  Transmission Date: 20120608
  Serious: No
  Sender: FDA-Public Use
  Company Number: 201108002

PATIENT
  Age: 51 Year
  Sex: Male

DRUGS (8)
  1. ASPIRIN [Concomitant]
  2. XIAFLEX (CLOSTRIDIAL COLLAGENASE) [Suspect]
     Indication: DUPUYTREN'S CONTRACTURE
     Dosage: 0.58 MG, 1 IN 1 D, INTRALESIONAL
     Route: 026
     Dates: start: 20110726, end: 20110726
  3. METFORMIN HCL [Concomitant]
  4. JANUVIA [Concomitant]
  5. LOSARTAN POTASSIUM [Concomitant]
  6. ACETYLSALICYLIC ACID SRT [Concomitant]
  7. LIPITOR [Concomitant]
  8. OMEPRAZOLE [Concomitant]

REACTIONS (2)
  - LYMPHADENOPATHY [None]
  - SWELLING [None]
